FAERS Safety Report 7949626-9 (Version None)
Quarter: 2011Q4

REPORT INFORMATION
  Report Type: 
  Country: None (occurrence: None)
  Receive Date: 20111130
  Receipt Date: 20111117
  Transmission Date: 20120403
  Serious: Yes (Hospitalization)
  Sender: FDA-Public Use
  Company Number: US-ASTRAZENECA-2011SE25882

PATIENT
  Age: 57 Year
  Sex: Female
  Weight: 68.9 kg

DRUGS (23)
  1. SEROQUEL XR [Suspect]
     Indication: BIPOLAR DISORDER
     Route: 048
     Dates: start: 20090101, end: 20110428
  2. 2 MUSCLE RELAXANTS [Concomitant]
  3. HYDROCORTISONE [Concomitant]
     Indication: ADRENAL DISORDER
  4. LANTUS [Concomitant]
     Indication: DIABETES MELLITUS
  5. TRANSIDONE [Concomitant]
  6. DYE HDNA ZOPYRID [Concomitant]
  7. SEROQUEL XR [Suspect]
     Route: 048
     Dates: start: 20110501, end: 20110901
  8. HYDROCODONE [Concomitant]
     Indication: PAIN
     Dosage: 10/325 DAILY
  9. SYNTHROID [Concomitant]
     Indication: THYROID DISORDER
  10. COUMADIN [Concomitant]
     Indication: THROMBOSIS
  11. PAIN PILLS [Concomitant]
     Indication: PAIN
     Dosage: 5 MG EVERY 4-6 HOUR
     Route: 048
  12. SEROQUEL XR [Suspect]
     Route: 048
     Dates: start: 20110501, end: 20110901
  13. KLONOPIN [Concomitant]
     Indication: RESTLESS LEGS SYNDROME
  14. NEXIUM [Suspect]
     Indication: OESOPHAGEAL DISORDER
     Route: 048
  15. IMODIUM [Concomitant]
  16. PHENAZOPYRIDINE HCL TAB [Concomitant]
     Indication: BLADDER DISORDER
  17. COUMADIN [Concomitant]
     Indication: CARDIAC DISORDER
  18. ZONEX [Concomitant]
  19. SEROQUEL XR [Suspect]
     Indication: PSYCHOTIC DISORDER
     Route: 048
     Dates: start: 20090101, end: 20110428
  20. NEXIUM [Suspect]
     Indication: HIATUS HERNIA
     Route: 048
  21. IMITREX [Concomitant]
  22. TRAZODONE HCL [Concomitant]
  23. CYCLOBENZAPR [Concomitant]

REACTIONS (8)
  - HALLUCINATION [None]
  - GASTROOESOPHAGEAL REFLUX DISEASE [None]
  - DRUG DOSE OMISSION [None]
  - DISORIENTATION [None]
  - SCREAMING [None]
  - PSYCHOTIC DISORDER [None]
  - SELF INJURIOUS BEHAVIOUR [None]
  - LIGAMENT RUPTURE [None]
